FAERS Safety Report 15854115 (Version 1)
Quarter: 2019Q1

REPORT INFORMATION
  Report Type: Spontaneous
  Country: US (occurrence: US)
  Receive Date: 20190121
  Receipt Date: 20190121
  Transmission Date: 20190417
  Serious: Yes (Other)
  Sender: FDA-Public Use
  Company Number: None

PATIENT
  Age: 64 Year
  Sex: Male
  Weight: 81 kg

DRUGS (1)
  1. METHADONE [Suspect]
     Active Substance: METHADONE HYDROCHLORIDE
     Indication: PAIN
     Dosage: ?          QUANTITY:14 TABLET(S);?
     Route: 048
     Dates: start: 20180711, end: 20181225

REACTIONS (10)
  - Constipation [None]
  - Diarrhoea [None]
  - Emotional distress [None]
  - Vomiting [None]
  - Nausea [None]
  - Pancreatitis [None]
  - Product substitution issue [None]
  - Decreased appetite [None]
  - Product complaint [None]
  - Pain [None]

NARRATIVE: CASE EVENT DATE: 20180711
